FAERS Safety Report 10044982 (Version 7)
Quarter: 2014Q3

REPORT INFORMATION
  Report Type: Report from Study
  Country: GB (occurrence: None)
  Receive Date: 20140326
  Receipt Date: 20140902
  Transmission Date: 20150326
  Serious: Yes (Hospitalization, Other)
  Sender: FDA-Public Use
  Company Number: GB-JNJFOC-20140209876

PATIENT
  Age: 28 Month
  Sex: Male
  Weight: 15.4 kg

DRUGS (23)
  1. CHLORPHENIRAMINE (CHLORPHENAMINE) SOLUTION [Concomitant]
  2. POTASSIUM CHLORIDE (POTASIUM CHLORIDE) LIQUID [Concomitant]
  3. FLUCLOXACILLIN (FLUCLOXACILLIN) LIQUID [Concomitant]
  4. PREDNISOLONE (PREDNISOLONE) LIQUID [Concomitant]
  5. BETAMETHASONE (BETAMETHASONE) SUSPENSION [Concomitant]
  6. VANCOMYCIN (VANCOMYCIN) UNSPECIFIED [Concomitant]
  7. ETOPOSIDE (ETOPOSIDE) UNSPECIFIED [Concomitant]
  8. CHLORPHENIRAMINE (CHLORPHENAMINE) SOLUTION [Concomitant]
  9. TEICOPLANIN (TEICOPLANIN) SOLUTION [Concomitant]
  10. CEFTAZIDIME (CEFTAZIDIME) SOLUTION [Concomitant]
  11. AMBISOME (AMPHOTERICIN B) SOLUTION [Concomitant]
  12. CYTARABINE. [Suspect]
     Active Substance: CYTARABINE
     Indication: ACUTE MYELOID LEUKAEMIA
     Route: 042
     Dates: start: 20140203
  13. PARACETAMOL (PARACETAMOL)) SOLUTION [Concomitant]
  14. DEXAMTHASONE (DEXAMETHASONE) UNSPECIFIED [Concomitant]
  15. TAZOCIN (PIP/TAZO) SOLUTION [Concomitant]
  16. CYCLOPHOSPHAMIDE (CYCLOPHOSPHAMIDE) UNSPECIFIED [Concomitant]
  17. DACOGEN [Suspect]
     Active Substance: DECITABINE
     Indication: ACUTE MYELOID LEUKAEMIA
     Dosage: 13.6 MG, 1 IN 1 DAY, INTRAVENOUS
     Route: 042
     Dates: start: 20140127, end: 20140131
  18. ONDANSETRON (ONDANSETRON) SOLUTION [Concomitant]
  19. AMILORIDE (AMILORIDE) LIQUID [Concomitant]
  20. GENTAMICIN [Concomitant]
     Active Substance: GENTAMICIN
  21. MEROPENEM (MEROPENEM) SOLUTION [Concomitant]
  22. ALLOPURINOL (ALLOPURINOL) UNSPECIFIED [Concomitant]
  23. CIPROFLOXACIN (CIPROFLOXACIN) SOLLUTION [Concomitant]

REACTIONS (15)
  - Haemoglobin decreased [None]
  - Human rhinovirus test positive [None]
  - Scratch [None]
  - White blood cell count decreased [None]
  - Device related infection [None]
  - Stomatitis [None]
  - Adenovirus test positive [None]
  - Pruritus [None]
  - Tachycardia [None]
  - Skin exfoliation [None]
  - Toxicity to various agents [None]
  - Skin hyperpigmentation [None]
  - Pseudomonas test positive [None]
  - Febrile neutropenia [None]
  - Superinfection [None]

NARRATIVE: CASE EVENT DATE: 20140201
